FAERS Safety Report 4319310-1 (Version None)
Quarter: 2004Q1

REPORT INFORMATION
  Report Type: 
  Country: None (occurrence: None)
  Receive Date: 20040318
  Receipt Date: 20040318
  Transmission Date: 20041129
  Serious: Yes (Life-Threatening)
  Sender: FDA-Public Use
  Company Number: None

PATIENT
  Sex: Male
  Weight: 96 kg

DRUGS (9)
  1. TRIZIVIR [Suspect]
     Indication: HIV INFECTION
     Dosage: 1 TABLET BID ORAL
     Route: 048
     Dates: start: 20040224, end: 20040312
  2. REYATAZ [Suspect]
     Indication: HIV INFECTION
     Dosage: 400 MG QD PO
     Route: 048
     Dates: start: 20040224, end: 20040312
  3. ATAZANAVIR [Concomitant]
  4. WELLBUTRIN [Concomitant]
  5. TRAZODONE [Concomitant]
  6. SEPTRA DS [Concomitant]
  7. MVI ACETAMINOPHEN [Concomitant]
  8. ASCORBIC ACID [Concomitant]
  9. OLANZAPINE [Concomitant]

REACTIONS (4)
  - DRUG HYPERSENSITIVITY [None]
  - HEPATIC ENZYME INCREASED [None]
  - MALAISE [None]
  - PYREXIA [None]
